FAERS Safety Report 16434913 (Version 1)
Quarter: 2019Q2

REPORT INFORMATION
  Report Type: Spontaneous
  Country: US (occurrence: US)
  Receive Date: 20190614
  Receipt Date: 20190614
  Transmission Date: 20190711
  Serious: No
  Sender: FDA-Public Use
  Company Number: US-JNJFOC-20190606006

PATIENT
  Age: 63 Year
  Sex: Male
  Weight: 102.06 kg

DRUGS (1)
  1. SIMPONI [Suspect]
     Active Substance: GOLIMUMAB
     Indication: RHEUMATOID ARTHRITIS
     Route: 058
     Dates: start: 20190530

REACTIONS (3)
  - Urticaria [Not Recovered/Not Resolved]
  - Nasopharyngitis [Unknown]
  - Dry mouth [Unknown]

NARRATIVE: CASE EVENT DATE: 20190530
